FAERS Safety Report 9078989 (Version 1)
Quarter: 2013Q1

REPORT INFORMATION
  Report Type: Spontaneous
  Country: BE (occurrence: BE)
  Receive Date: 20130130
  Receipt Date: 20130130
  Transmission Date: 20140127
  Serious: Yes (Hospitalization)
  Sender: FDA-Public Use
  Company Number: BE-ROCHE-1184043

PATIENT
  Sex: 0

DRUGS (3)
  1. ROACTEMRA [Suspect]
     Indication: PRODUCT USED FOR UNKNOWN INDICATION
     Route: 065
     Dates: start: 200809
  2. METHYLPREDNISOLON [Concomitant]
  3. METHOTREXATE [Concomitant]
     Route: 065

REACTIONS (1)
  - Skin disorder [Not Recovered/Not Resolved]
